FAERS Safety Report 19734992 (Version 1)
Quarter: 2021Q3

REPORT INFORMATION
  Report Type: Spontaneous
  Country: US (occurrence: US)
  Receive Date: 20210823
  Receipt Date: 20210823
  Transmission Date: 20211014
  Serious: Yes (Other)
  Sender: FDA-Public Use
  Company Number: US-PFIZER INC-202100952815

PATIENT
  Age: 62 Year
  Sex: Female

DRUGS (8)
  1. IBRANCE [Suspect]
     Active Substance: PALBOCICLIB
     Dosage: 100 MG, CYCLIC (21 DAYS ON,7 DAYS OFF)
     Route: 048
     Dates: start: 20210711
  2. ZOMETA [Concomitant]
     Active Substance: ZOLEDRONIC ACID
  3. PROBIOTIC COMPLEX [Concomitant]
  4. CALCIUM [Concomitant]
     Active Substance: CALCIUM
  5. EVENING PRIMROSE OIL + CRANBERRY [Concomitant]
  6. LEVOTHYROXINE. [Concomitant]
     Active Substance: LEVOTHYROXINE
  7. LETROZOLE. [Concomitant]
     Active Substance: LETROZOLE
  8. IBRANCE [Suspect]
     Active Substance: PALBOCICLIB
     Indication: BREAST CANCER FEMALE
     Dosage: 125 MG
     Dates: start: 20210709

REACTIONS (6)
  - Red blood cell count decreased [Unknown]
  - Fatigue [Not Recovered/Not Resolved]
  - Neutropenia [Not Recovered/Not Resolved]
  - Alopecia [Unknown]
  - Headache [Unknown]
  - White blood cell count decreased [Unknown]
